FAERS Safety Report 25650391 (Version 2)
Quarter: 2025Q4

REPORT INFORMATION
  Report Type: Report from Study
  Country: CA (occurrence: CA)
  Receive Date: 20250806
  Receipt Date: 20251204
  Transmission Date: 20260117
  Serious: Yes (Other)
  Sender: TAKEDA
  Company Number: CA-TAKEDA-2024TUS050722

PATIENT
  Age: 24 Year
  Sex: Female

DRUGS (4)
  1. VEDOLIZUMAB [Suspect]
     Active Substance: VEDOLIZUMAB
     Indication: Crohn^s disease
     Dosage: 300 MILLIGRAM
  2. VEDOLIZUMAB [Suspect]
     Active Substance: VEDOLIZUMAB
     Dosage: 300 MILLIGRAM
  3. VEDOLIZUMAB [Suspect]
     Active Substance: VEDOLIZUMAB
     Dosage: 300 MILLIGRAM
  4. IRON [Concomitant]
     Active Substance: IRON
     Dosage: UNK

REACTIONS (8)
  - Impaired gastric emptying [Unknown]
  - Therapeutic reaction time decreased [Not Recovered/Not Resolved]
  - Abdominal pain upper [Unknown]
  - Retching [Unknown]
  - Weight decreased [Unknown]
  - Gastrooesophageal reflux disease [Unknown]
  - Dyspepsia [Unknown]
  - Endometriosis [Unknown]
